FAERS Safety Report 8247377-7 (Version None)
Quarter: 2012Q1

REPORT INFORMATION
  Report Type: 
  Country: None (occurrence: None)
  Receive Date: 20120330
  Receipt Date: 20120320
  Transmission Date: 20120608
  Serious: Yes (Other)
  Sender: FDA-Public Use
  Company Number: CN-PFIZER INC-2012072755

PATIENT
  Age: 81 Year
  Sex: Female
  Weight: 62 kg

DRUGS (5)
  1. BETAHISTINE HYDROCHLORIDE [Concomitant]
     Indication: PROPHYLAXIS
     Dosage: 8 MG, 3X/DAY
     Route: 048
     Dates: start: 20101229
  2. AXITINIB [Suspect]
     Indication: METASTATIC RENAL CELL CARCINOMA
     Dosage: 3 MG, 2X/DAY
     Route: 048
     Dates: start: 20110615
  3. VITAMIN E [Concomitant]
     Indication: NUTRITIONAL SUPPORT
     Dosage: 268 MG, 1X/DAY
     Route: 048
     Dates: start: 20101229
  4. ASCORBIC ACID [Concomitant]
     Indication: NUTRITIONAL SUPPORT
     Dosage: 100 MG, 1X/DAY
     Route: 048
     Dates: start: 20101229
  5. VITAMIN B6 [Concomitant]
     Indication: NUTRITIONAL SUPPORT
     Dosage: 10 MG, 1X/DAY
     Route: 048
     Dates: start: 20101229

REACTIONS (1)
  - CEREBRAL ISCHAEMIA [None]
